FAERS Safety Report 13709631 (Version 11)
Quarter: 2019Q2

REPORT INFORMATION
  Report Type: Report from Study
  Country: CA (occurrence: CA)
  Receive Date: 20170703
  Receipt Date: 20190617
  Transmission Date: 20190711
  Serious: Yes (Hospitalization, Other)
  Sender: FDA-Public Use
  Company Number: CA-BRISTOL-MYERS SQUIBB COMPANY-BMS-2017-058029

PATIENT
  Age: 77 Year
  Sex: Female

DRUGS (3)
  1. RIFAMPIN. [Suspect]
     Active Substance: RIFAMPIN
     Indication: PRODUCT USED FOR UNKNOWN INDICATION
     Route: 065
  2. ABATACEPT [Suspect]
     Active Substance: ABATACEPT
     Indication: RHEUMATOID ARTHRITIS
     Dosage: 500 MG, Q4WK
     Route: 042
     Dates: start: 20100824
  3. ABATACEPT [Suspect]
     Active Substance: ABATACEPT
     Indication: PRODUCT USED FOR UNKNOWN INDICATION
     Dosage: 500 MG, Q4WK
     Route: 042
     Dates: start: 20170417, end: 20180926

REACTIONS (18)
  - Cerebrovascular accident [Unknown]
  - Meningitis [Unknown]
  - Blood potassium decreased [Unknown]
  - Tooth disorder [Unknown]
  - Iron deficiency [Unknown]
  - Gait inability [Unknown]
  - Arthralgia [Unknown]
  - Speech disorder [Unknown]
  - Asthenia [Unknown]
  - Fatigue [Recovered/Resolved]
  - Diarrhoea [Unknown]
  - Dizziness [Unknown]
  - Sleep apnoea syndrome [Unknown]
  - Fungal skin infection [Unknown]
  - Hypersensitivity [Unknown]
  - Migraine [Unknown]
  - Product dispensing error [Unknown]
  - Underdose [Unknown]

NARRATIVE: CASE EVENT DATE: 20180117
